FAERS Safety Report 24546250 (Version 2)
Quarter: 2024Q4

REPORT INFORMATION
  Report Type: Spontaneous
  Country: DE (occurrence: DE)
  Receive Date: 20241024
  Receipt Date: 20241104
  Transmission Date: 20250114
  Serious: Yes (Other)
  Sender: ELI LILLY AND COMPANY
  Company Number: None

PATIENT
  Age: 38 Year
  Sex: Female
  Weight: 58 kg

DRUGS (4)
  1. ATOMOXETINE HYDROCHLORIDE [Suspect]
     Active Substance: ATOMOXETINE HYDROCHLORIDE
     Indication: Attention deficit hyperactivity disorder
     Dosage: 10 MG, UNKNOWN; TREATMENT STARTED WITH 10 MG, THEN 18 MG, AND FINALLY 25 MG
     Route: 048
     Dates: start: 20240110, end: 20241007
  2. ATOMOXETINE HYDROCHLORIDE [Suspect]
     Active Substance: ATOMOXETINE HYDROCHLORIDE
     Dosage: 18 MG, UNKNOWN; TREATMENT STARTED WITH 10 MG, THEN 18 MG, AND FINALLY 25 MG
     Route: 048
     Dates: start: 20240110, end: 20241007
  3. ATOMOXETINE HYDROCHLORIDE [Suspect]
     Active Substance: ATOMOXETINE HYDROCHLORIDE
     Dosage: 25 MG, UNKNOWN; TREATMENT STARTED WITH 10 MG, THEN 18 MG, AND FINALLY 25 MG
     Route: 048
     Dates: start: 20240110, end: 20241007
  4. DULOXETINE [Concomitant]
     Active Substance: DULOXETINE
     Indication: Product used for unknown indication
     Dosage: 60 MG, UNKNOWN
     Route: 065

REACTIONS (4)
  - Suicidal ideation [Recovering/Resolving]
  - Emotional poverty [Recovering/Resolving]
  - Anhedonia [Recovering/Resolving]
  - Off label use [Unknown]

NARRATIVE: CASE EVENT DATE: 20240110
